FAERS Safety Report 22586260 (Version 1)
Quarter: 2023Q2

REPORT INFORMATION
  Report Type: Spontaneous
  Country: US (occurrence: US)
  Receive Date: 20230611
  Receipt Date: 20230611
  Transmission Date: 20230722
  Serious: No
  Sender: FDA-Public Use
  Company Number: US-SA-SAC20230608000034

PATIENT
  Age: 50 Year
  Sex: Male

DRUGS (1)
  1. LUMIZYME [Suspect]
     Active Substance: ALGLUCOSIDASE ALFA
     Indication: Glycogen storage disease type II

REACTIONS (5)
  - COVID-19 [Unknown]
  - Respiratory syncytial virus infection [Unknown]
  - Mobility decreased [Recovered/Resolved]
  - Fatigue [Unknown]
  - Tracheostomy [Unknown]
